FAERS Safety Report 15704693 (Version 2)
Quarter: 2019Q1

REPORT INFORMATION
  Report Type: Spontaneous
  Country: US (occurrence: US)
  Receive Date: 20181210
  Receipt Date: 20190110
  Transmission Date: 20190417
  Serious: Yes (Other)
  Sender: FDA-Public Use
  Company Number: PHEH2018US050680

PATIENT
  Sex: Male

DRUGS (1)
  1. MEKINIST [Suspect]
     Active Substance: TRAMETINIB DIMETHYL SULFOXIDE
     Indication: BRAIN NEOPLASM MALIGNANT
     Dosage: 2 MG, QD
     Route: 048
     Dates: start: 20181102

REACTIONS (10)
  - Product use in unapproved indication [Unknown]
  - Diarrhoea [Unknown]
  - Skin lesion [Unknown]
  - Rash generalised [Unknown]
  - Oral disorder [Unknown]
  - Fatigue [Unknown]
  - Vision blurred [Unknown]
  - Decreased appetite [Unknown]
  - Neoplasm progression [Unknown]
  - Dermatitis acneiform [Unknown]
